FAERS Safety Report 21225321 (Version 7)
Quarter: 2023Q1

REPORT INFORMATION
  Report Type: Other
  Country: AU (occurrence: None)
  Receive Date: 20220817
  Receipt Date: 20230219
  Transmission Date: 20230418
  Serious: Yes (Other)
  Sender: FDA-Public Use
  Company Number: AU-ROCHE-3161278

PATIENT
  Age: 49 Year
  Sex: Female

DRUGS (2)
  1. OCREVUS [Suspect]
     Active Substance: OCRELIZUMAB
     Indication: Relapsing-remitting multiple sclerosis
     Route: 041
     Dates: start: 20210524
  2. OCREVUS [Suspect]
     Active Substance: OCRELIZUMAB
     Route: 041
     Dates: start: 20210524

REACTIONS (3)
  - COVID-19 [Not Recovered/Not Resolved]
  - Rosacea [Recovering/Resolving]
  - Appendicitis [Recovered/Resolved]

NARRATIVE: CASE EVENT DATE: 20220815
